FAERS Safety Report 21706205 (Version 1)
Quarter: 2022Q4

REPORT INFORMATION
  Report Type: Spontaneous
  Country: US (occurrence: None)
  Receive Date: 20221208
  Receipt Date: 20221208
  Transmission Date: 20230112
  Serious: No
  Sender: FDA-Public Use
  Company Number: None

PATIENT
  Age: 67 Year
  Sex: Female

DRUGS (1)
  1. LENALIDOMIDE [Suspect]
     Active Substance: LENALIDOMIDE
     Indication: Plasma cell myeloma
     Dosage: FREQUENCY : DAILY;?
     Route: 048
     Dates: start: 20200417

REACTIONS (6)
  - Cough [None]
  - Feeling abnormal [None]
  - Asthenia [None]
  - Glossitis [None]
  - Glossodynia [None]
  - Product substitution issue [None]

NARRATIVE: CASE EVENT DATE: 20221029
